FAERS Safety Report 8106617-5 (Version None)
Quarter: 2012Q1

REPORT INFORMATION
  Report Type: 
  Country: None (occurrence: None)
  Receive Date: 20120130
  Receipt Date: 20120116
  Transmission Date: 20120608
  Serious: Yes (Hospitalization)
  Sender: FDA-Public Use
  Company Number: DSA_48910_2012

PATIENT
  Age: 74 Year
  Sex: Male

DRUGS (8)
  1. PANTOPRAZOLE [Suspect]
     Indication: PROPHYLAXIS AGAINST GASTROINTESTINAL ULCER
     Dosage: (20 MG QD ORAL)
     Route: 048
     Dates: end: 20100101
  2. SPIRIVA [Concomitant]
  3. DILTIAZEM HCL [Suspect]
     Indication: MYOCARDIAL ISCHAEMIA
     Dosage: (240 MG QD ORAL)
     Route: 048
     Dates: start: 20010101
  4. IRINOTECAN HCL [Suspect]
     Indication: ADENOCARCINOMA
     Dosage: (18.5 MG QD INTRAVENOUS (NOT OTHERWISE SPECIFIED))
     Route: 048
     Dates: start: 20100101
  5. LYRICA [Suspect]
     Indication: NEURALGIA
     Dosage: (75 MG BID ORAL)
     Route: 048
     Dates: start: 20100101
  6. ACETAMINOPHEN AND CODEINE PHOSPHATE [Suspect]
     Indication: PAIN
     Dosage: (530 MG QD ORAL)
     Route: 048
     Dates: start: 20100101
  7. ACETYLSALICYLIC ACID SRT [Concomitant]
  8. PLASIL /00041902/ [Concomitant]

REACTIONS (11)
  - HAEMATOCRIT DECREASED [None]
  - PAIN [None]
  - LEUKOPENIA [None]
  - NEURALGIA [None]
  - ACUTE MYOCARDIAL INFARCTION [None]
  - HYPERPYREXIA [None]
  - WHITE BLOOD CELL COUNT DECREASED [None]
  - DIARRHOEA [None]
  - HAEMOGLOBIN DECREASED [None]
  - GASTRIC CANCER [None]
  - ERYTHROPENIA [None]
